FAERS Safety Report 8292170 (Version 3)
Quarter: 2013Q2

REPORT INFORMATION
  Report Type: Spontaneous
  Country: US (occurrence: None)
  Receive Date: 20111122
  Receipt Date: 20120426
  Transmission Date: 20140414
  Serious: No
  Sender: FDA-Public Use
  Company Number: PHEH2011US01892

PATIENT
  Age: 45 Year
  Sex: Female
  Weight: 100.7 kg

DRUGS (12)
  1. GILENYA [Suspect]
     Indication: MULTIPLE SCLEROSIS
     Route: 048
     Dates: start: 201106
  2. TOPAMAX (TOPIRAMATE) [Concomitant]
  3. CYMBALTA (DULOXETINE HYDROCHLORIDE) [Concomitant]
  4. KADIAN (MORPHINE SULFATE) [Concomitant]
  5. HYDROCODONE (HYDROCODONE) [Concomitant]
  6. BETHANECHOL (BETHANECHOL) [Concomitant]
  7. FISH OIL (FISH OIL) [Concomitant]
  8. TYLENOL (PARACETAMOL) [Concomitant]
  9. BACLOFEN (BACLOFEN) [Concomitant]
  10. LEVOTHYROXINE (LEVOTHYROXINE) [Concomitant]
  11. PROTONIX (PANTOPRAZOLE) [Concomitant]
  12. DULCOLAX (BISACODYL) [Concomitant]

REACTIONS (9)
  - INSOMNIA [None]
  - Impaired healing [None]
  - Fascial infection [None]
  - Groin pain [None]
  - Weight increased [None]
  - Fall [None]
  - Arthralgia [None]
  - Anxiety [None]
  - Depression [None]
